FAERS Safety Report 9248561 (Version 1)
Quarter: 2013Q1

REPORT INFORMATION
  Report Type: Spontaneous
  Country: US (occurrence: None)
  Receive Date: 20121113
  Receipt Date: 20121113
  Transmission Date: 20140127
  Serious: Yes (Hospitalization)
  Sender: FDA-Public Use
  Company Number: PHEH2012US016082

PATIENT
  Sex: 0

DRUGS (1)
  1. TRILEPTAL [Suspect]
     Dosage: 1 DF (2 TABLETS OF 600 MG 3 TIMES DAILY)

REACTIONS (2)
  - Sedation [None]
  - Drug prescribing error [None]
